FAERS Safety Report 4733363-8 (Version None)
Quarter: 2005Q3

REPORT INFORMATION
  Report Type: 
  Country: None (occurrence: None)
  Receive Date: 20050801
  Receipt Date: 20050801
  Transmission Date: 20060218
  Serious: Yes (Hospitalization)
  Sender: FDA-Public Use
  Company Number: None

PATIENT
  Age: 92 Year
  Sex: Male

DRUGS (5)
  1. DILTIAZEM [Suspect]
     Indication: HYPERTENSION
     Dosage: 180 MG QD
     Dates: start: 19970801
  2. FUROSEMIDE [Suspect]
     Indication: HYPERTENSION
     Dosage: 30 MG MWF 20 MG OTHER DAYS
     Dates: start: 20010401
  3. LISINOPRIL [Suspect]
     Dosage: 2.5 MG QD
     Dates: start: 20050606
  4. GABAPENTIN [Concomitant]
  5. OMEPRAZOLE [Concomitant]

REACTIONS (2)
  - HYPOTENSION [None]
  - SYNCOPE [None]
